FAERS Safety Report 9383714 (Version 3)
Quarter: 2013Q3

REPORT INFORMATION
  Report Type: Spontaneous
  Country: US (occurrence: US)
  Receive Date: 20130704
  Receipt Date: 20130826
  Transmission Date: 20140515
  Serious: No
  Sender: FDA-Public Use
  Company Number: US-009507513-1307USA001237

PATIENT
  Sex: Male

DRUGS (3)
  1. REBETOL [Suspect]
     Indication: CHRONIC HEPATITIS C
     Dosage: 1200 MG DAILY IN DIVIDED DOSES (1200 MG, 1 IN 1 D)
     Route: 065
     Dates: start: 20130531
  2. VICTRELIS [Suspect]
     Indication: CHRONIC HEPATITIS C
     Dosage: UNK
     Route: 065
     Dates: start: 20130531
  3. PEGASYS [Suspect]
     Indication: CHRONIC HEPATITIS C
     Dosage: 180 MICROGRAM, EVERY WEEK (180 MCG, 1 IN 1 WK)
     Route: 065
     Dates: start: 20130531

REACTIONS (9)
  - Bone pain [Unknown]
  - Joint lock [Unknown]
  - Insomnia [Unknown]
  - Irritability [Unknown]
  - Decreased appetite [Unknown]
  - Pain in extremity [Unknown]
  - Neck pain [Unknown]
  - Dysgeusia [Unknown]
  - Feeling abnormal [Unknown]
